FAERS Safety Report 24365558 (Version 1)
Quarter: 2024Q3

REPORT INFORMATION
  Report Type: Report from Study
  Country: CA (occurrence: CA)
  Receive Date: 20240926
  Receipt Date: 20240926
  Transmission Date: 20241016
  Serious: Yes (Other)
  Sender: ABBVIE
  Company Number: CA-ABBVIE-5935020

PATIENT
  Sex: Female

DRUGS (1)
  1. RINVOQ [Suspect]
     Active Substance: UPADACITINIB
     Indication: Ankylosing spondylitis
     Route: 048
     Dates: start: 20240109

REACTIONS (6)
  - Blindness [Unknown]
  - Dizziness [Unknown]
  - Colitis ulcerative [Unknown]
  - Systemic lupus erythematosus [Unknown]
  - Raynaud^s phenomenon [Unknown]
  - Amnesia [Unknown]

NARRATIVE: CASE EVENT DATE: 20240101
